FAERS Safety Report 4921028-9 (Version None)
Quarter: 2006Q1

REPORT INFORMATION
  Report Type: 
  Country: None (occurrence: None)
  Receive Date: 20060216
  Receipt Date: 20060209
  Transmission Date: 20060701
  Serious: Yes (Hospitalization)
  Sender: FDA-Public Use
  Company Number: HQWYE755910FEB06

PATIENT
  Age: 55 Year
  Sex: Female

DRUGS (13)
  1. RAPAMUNE [Suspect]
     Indication: PROPHYLAXIS AGAINST TRANSPLANT REJECTION
     Dosage: 2 MG 1X PER 1 DAY, ORAL
     Route: 048
     Dates: start: 20031216
  2. MYCOPHENOLATE MOFETIL (MYCOPHENOLATE MOFETIL, ) [Suspect]
     Indication: PROPHYLAXIS AGAINST TRANSPLANT REJECTION
     Dosage: 1 G 2X PER 1 DAY, ORAL
     Route: 048
     Dates: start: 20031216
  3. PREDNISONE TAB [Suspect]
     Indication: PROPHYLAXIS AGAINST TRANSPLANT REJECTION
     Dosage: 7.5 MG 1X PER 1 DAY
     Dates: start: 20031216
  4. ZENAPAX [Suspect]
     Indication: PROPHYLAXIS AGAINST TRANSPLANT REJECTION
     Dosage: 2 MG/KG; SEE IMAGE
     Route: 042
     Dates: start: 20031216, end: 20031216
  5. ZENAPAX [Suspect]
     Indication: PROPHYLAXIS AGAINST TRANSPLANT REJECTION
     Dosage: 2 MG/KG; SEE IMAGE
     Route: 042
     Dates: start: 20031230, end: 20040209
  6. OMEPRAZOLE [Concomitant]
  7. LEVOTHYROXINE SODIUM [Concomitant]
  8. ATENOLOL [Concomitant]
  9. SULFAMETHOXAZOLE + TRIMETHOPRIM [Concomitant]
  10. NYSTATIN [Concomitant]
  11. CALCIUM GLUBIONATE (CALCIUM GLUBIONATE) [Concomitant]
  12. ALFACALCIDOL (ALFACALCIDOL) [Concomitant]
  13. AMLODIPINE BESYLATE [Concomitant]

REACTIONS (2)
  - LARYNGITIS [None]
  - LEUKOPENIA [None]
